FAERS Safety Report 10163457 (Version 2)
Quarter: 2020Q3

REPORT INFORMATION
  Report Type: Report from Study
  Country: US (occurrence: US)
  Receive Date: 20140509
  Receipt Date: 20140509
  Transmission Date: 20201105
  Serious: Yes (Hospitalization)
  Sender: FDA-Public Use
  Company Number: US-JNJFOC-20140501348

PATIENT
  Age: 64 Year
  Sex: Male

DRUGS (8)
  1. LEVOXYL [Concomitant]
     Active Substance: LEVOTHYROXINE SODIUM
  2. METOPROLOL. [Concomitant]
     Active Substance: METOPROLOL
  3. CYTOMEL [Concomitant]
     Active Substance: LIOTHYRONINE SODIUM
     Dosage: 7.5
  4. OMEGA 3 [Concomitant]
     Active Substance: OMEGA-3 FATTY ACIDS
  5. VITAMIN D NOS [Concomitant]
     Active Substance: VITAMIN D NOS
  6. ASPIRIN. [Concomitant]
     Active Substance: ASPIRIN
     Indication: PHLEBITIS
  7. IBRUTINIB [Suspect]
     Active Substance: IBRUTINIB
     Route: 048
  8. IBRUTINIB [Suspect]
     Active Substance: IBRUTINIB
     Indication: CHRONIC LYMPHOCYTIC LEUKAEMIA
     Route: 048

REACTIONS (3)
  - Atrial fibrillation [Unknown]
  - Pericardial effusion [Unknown]
  - Respiratory failure [Unknown]

NARRATIVE: CASE EVENT DATE: 20130622
